FAERS Safety Report 16655456 (Version 1)
Quarter: 2019Q3

REPORT INFORMATION
  Report Type: Spontaneous
  Country: FR (occurrence: FR)
  Receive Date: 20190801
  Receipt Date: 20190801
  Transmission Date: 20191004
  Serious: Yes (Hospitalization)
  Sender: FDA-Public Use
  Company Number: FR-ASTRAZENECA-2019SF05734

PATIENT
  Age: 56 Year
  Sex: Male
  Weight: 60.8 kg

DRUGS (2)
  1. ALIMTA [Suspect]
     Active Substance: PEMETREXED DISODIUM
     Indication: LUNG NEOPLASM MALIGNANT
     Route: 042
     Dates: end: 20160106
  2. INEXIUM [Suspect]
     Active Substance: ESOMEPRAZOLE
     Indication: OESOPHAGEAL PAIN
     Route: 048
     Dates: start: 201601, end: 201601

REACTIONS (5)
  - Hepatocellular injury [Recovered/Resolved]
  - Rash pruritic [Recovered/Resolved]
  - Bicytopenia [Recovered/Resolved]
  - Rash maculo-papular [Recovered/Resolved]
  - Acute kidney injury [Recovered/Resolved with Sequelae]

NARRATIVE: CASE EVENT DATE: 20160110
